FAERS Safety Report 4551107-X (Version None)
Quarter: 2005Q1

REPORT INFORMATION
  Report Type: 
  Country: None (occurrence: None)
  Receive Date: 20050113
  Receipt Date: 20030310
  Transmission Date: 20050727
  Serious: Yes (Death, Hospitalization, Other)
  Sender: FDA-Public Use
  Company Number: 200312251US

PATIENT
  Sex: Female
  Weight: 46.8 kg

DRUGS (35)
  1. ARAVA [Suspect]
     Indication: JUVENILE ARTHRITIS
     Dates: start: 20000501, end: 20020201
  2. PROTONIX [Suspect]
     Dosage: DOSE: UNKNOWN
  3. METHOTREXATE [Suspect]
     Dosage: DOSE: UNKNOWN
     Dates: start: 20010801
  4. IMDUR [Concomitant]
     Dosage: DOSE: UNKNOWN
  5. OXYCONTIN [Concomitant]
  6. OXYCODONE HCL [Concomitant]
  7. PEPCID [Concomitant]
     Route: 048
  8. INDOCIN [Concomitant]
  9. PREDNISONE [Concomitant]
  10. K-DUR 10 [Concomitant]
  11. ACETAMINOPHEN [Concomitant]
  12. DIFLUCAN [Concomitant]
     Route: 042
  13. METHYLPREDNISOLONE [Concomitant]
     Route: 042
  14. PREVACID [Concomitant]
  15. INDOMETHACIN [Concomitant]
     Route: 048
  16. FOLIC ACID [Concomitant]
     Route: 048
  17. FOSAMAX [Concomitant]
     Route: 048
  18. NIFEREX [Concomitant]
     Route: 048
  19. OSCAL [Concomitant]
  20. MULTIVITAMINS, PLAIN [Concomitant]
     Dosage: DOSE: UNK
  21. PLAQUENIL [Concomitant]
     Dosage: DOSE: UNK
  22. GOLD [Concomitant]
     Dosage: DOSE: UNK
  23. CYCLOSPORINE [Concomitant]
     Dosage: DOSE: UNK
  24. ENBREL [Concomitant]
     Dosage: DOSE: UNK
  25. IMURAN [Concomitant]
     Dosage: DOSE: UNK
  26. LASIX [Concomitant]
  27. ASACOL [Concomitant]
     Route: 048
  28. REMICADE [Concomitant]
     Dosage: DOSE: UNKNOWN
  29. PHENERGAN [Concomitant]
     Dosage: DOSE: UNKNOWN
  30. MAGNESIUM [Concomitant]
     Dosage: DOSE: UNKNOWN
  31. ZANTAC [Concomitant]
     Dosage: DOSE: UNKNOWN
  32. COZAAR [Concomitant]
     Dosage: DOSE: UNKNOWN
  33. CELEBREX [Concomitant]
  34. LOPERAMIDE HCL [Concomitant]
     Route: 048
  35. CLOTRIMAZOLE [Concomitant]
     Route: 048

REACTIONS (31)
  - ANAEMIA [None]
  - ARTHRALGIA [None]
  - BETA HAEMOLYTIC STREPTOCOCCAL INFECTION [None]
  - BLOOD BICARBONATE INCREASED [None]
  - BLOOD CHLORIDE DECREASED [None]
  - BLOOD POTASSIUM DECREASED [None]
  - CARDIAC FAILURE [None]
  - CATARACT CORTICAL [None]
  - CELLULITIS [None]
  - COLITIS [None]
  - CREATINE PHOSPHOKINASE DECREASED [None]
  - ELECTROCARDIOGRAM P WAVE ABNORMAL [None]
  - ELECTROCARDIOGRAM ST-T SEGMENT DEPRESSION [None]
  - EXTREMITY NECROSIS [None]
  - HEPATIC FAILURE [None]
  - HYPERTENSION [None]
  - HYPOGLYCAEMIA [None]
  - HYPONATRAEMIA [None]
  - HYPOXIC ENCEPHALOPATHY [None]
  - INFECTION [None]
  - MALNUTRITION [None]
  - OEDEMA [None]
  - PLATELET COUNT INCREASED [None]
  - PNEUMONIA [None]
  - PYREXIA [None]
  - RENAL FAILURE ACUTE [None]
  - SINUS TACHYCARDIA [None]
  - SKIN REACTION [None]
  - VENTRICULAR HYPERTROPHY [None]
  - WEIGHT INCREASED [None]
  - WHITE BLOOD CELL COUNT INCREASED [None]
